FAERS Safety Report 5227407-7 (Version None)
Quarter: 2007Q1

REPORT INFORMATION
  Report Type: 
  Country: None (occurrence: None)
  Receive Date: 20061201
  Receipt Date: 20060926
  Transmission Date: 20070707
  Serious: No
  Sender: FDA-Public Use
  Company Number: US200609006732

PATIENT
  Sex: Female

DRUGS (2)
  1. CYMBALTA [Suspect]
     Indication: PAIN
     Dosage: 60 MG, ORAL
     Route: 048
     Dates: start: 20060101, end: 20060922
  2. ZYVOX [Concomitant]

REACTIONS (4)
  - MIGRAINE [None]
  - NAUSEA [None]
  - PAIN [None]
  - VOMITING [None]
